FAERS Safety Report 9769255 (Version 2)
Quarter: 2014Q1

REPORT INFORMATION
  Report Type: Not Available
  Country: FR (occurrence: FR)
  Receive Date: 20131218
  Receipt Date: 20140221
  Transmission Date: 20141002
  Serious: Yes (Hospitalization)
  Sender: FDA-Public Use
  Company Number: FR-NAPPMUNDI-GBR-2013-0016583

PATIENT
  Age: 73 Year
  Sex: Male

DRUGS (10)
  1. OXYCONTIN LP, COMPRIME PELLICULE A LIBERATION PROLONGEE [Suspect]
     Indication: CANCER PAIN
     Dosage: 50 MG, BID
     Route: 048
     Dates: start: 20130617
  2. OXYCONTIN LP, COMPRIME PELLICULE A LIBERATION PROLONGEE [Suspect]
     Indication: BACK PAIN
     Dosage: 70 MG, BID
     Route: 048
     Dates: start: 20130613
  3. OXYNORM 10 MG, GELULE [Suspect]
     Indication: CANCER PAIN
     Dosage: 10 MG, Q4H
     Route: 048
     Dates: start: 20130617
  4. OXYNORM 10 MG, GELULE [Suspect]
     Indication: BACK PAIN
  5. LYRICA [Concomitant]
     Dosage: 75 MG, UNK
  6. PREDNISOLONE [Concomitant]
     Dosage: 40 MG, UNK
  7. INEXIUM                            /01479302/ [Concomitant]
     Dosage: 20 MG, UNK
  8. OLMETEC [Concomitant]
     Dosage: 20 MG, UNK
  9. ESIDREX [Concomitant]
  10. TETRAZEPAM [Concomitant]

REACTIONS (4)
  - Overdose [Recovered/Resolved]
  - Renal failure [Recovered/Resolved]
  - Somnolence [Recovered/Resolved]
  - Confusional state [Recovered/Resolved]
